FAERS Safety Report 6073515-0 (Version None)
Quarter: 2009Q1

REPORT INFORMATION
  Report Type: 
  Country: None (occurrence: None)
  Receive Date: 20090211
  Receipt Date: 20090206
  Transmission Date: 20090719
  Serious: Yes (Life-Threatening, Hospitalization, Other)
  Sender: FDA-Public Use
  Company Number: US-BAYER-200911039NA

PATIENT
  Age: 35 Year
  Sex: Female

DRUGS (5)
  1. AVELOX [Suspect]
     Indication: DRUG USE FOR UNKNOWN INDICATION
     Dosage: UNIT DOSE: 400 MG
     Dates: start: 20090114
  2. CYMBALTA [Concomitant]
  3. SINGULAIR [Concomitant]
  4. MOBIC [Concomitant]
  5. LYRICA [Concomitant]

REACTIONS (10)
  - ANAPHYLACTIC REACTION [None]
  - BLOOD PRESSURE DECREASED [None]
  - CONVULSION [None]
  - CYANOSIS [None]
  - DISORIENTATION [None]
  - DYSPNOEA [None]
  - GENERALISED ERYTHEMA [None]
  - INCOHERENT [None]
  - LIP SWELLING [None]
  - PO2 DECREASED [None]
